FAERS Safety Report 7435328-4 (Version None)
Quarter: 2011Q2

REPORT INFORMATION
  Report Type: 
  Country: None (occurrence: None)
  Receive Date: 20110425
  Receipt Date: 20110419
  Transmission Date: 20111010
  Serious: Yes (Hospitalization)
  Sender: FDA-Public Use
  Company Number: A0885078A

PATIENT
  Age: 61 Year
  Sex: Female
  Weight: 83.6 kg

DRUGS (5)
  1. DYAZIDE [Concomitant]
  2. METOPROLOL [Concomitant]
  3. ZOCOR [Concomitant]
  4. PEPCID [Concomitant]
  5. AVANDIA [Suspect]
     Dosage: 4MG PER DAY
     Route: 048
     Dates: start: 20030204, end: 20070101

REACTIONS (4)
  - MYOCARDIAL INFARCTION [None]
  - CARDIAC DISORDER [None]
  - ISCHAEMIC CARDIOMYOPATHY [None]
  - ACUTE CORONARY SYNDROME [None]
